FAERS Safety Report 8168531-9 (Version None)
Quarter: 2012Q1

REPORT INFORMATION
  Report Type: 
  Country: None (occurrence: None)
  Receive Date: 20120227
  Receipt Date: 20120227
  Transmission Date: 20120608
  Serious: Yes (Other)
  Sender: FDA-Public Use
  Company Number: None

PATIENT
  Sex: Male
  Weight: 72.574 kg

DRUGS (2)
  1. ADALIMUMAB [Concomitant]
  2. CRESTOR [Suspect]
     Indication: BLOOD CHOLESTEROL INCREASED
     Dosage: 5MG
     Route: 048
     Dates: start: 20120131, end: 20120224

REACTIONS (5)
  - FATIGUE [None]
  - VENTRICULAR EXTRASYSTOLES [None]
  - ARRHYTHMIA [None]
  - HEADACHE [None]
  - CONSTIPATION [None]
